FAERS Safety Report 4908164-8 (Version None)
Quarter: 2006Q1

REPORT INFORMATION
  Report Type: 
  Country: None (occurrence: None)
  Receive Date: 20060210
  Receipt Date: 20050419
  Transmission Date: 20060701
  Serious: Yes (Hospitalization, Other)
  Sender: FDA-Public Use
  Company Number: US-MERCK-0504USA03775

PATIENT
  Age: 60 Year
  Sex: Female
  Weight: 65 kg

DRUGS (5)
  1. VIOXX [Suspect]
     Indication: ARTHRITIS
     Route: 048
     Dates: start: 19990730, end: 20040101
  2. VIOXX [Suspect]
     Route: 048
     Dates: start: 19991101, end: 20040101
  3. ULTRAM [Concomitant]
     Route: 065
  4. AMBIEN [Concomitant]
     Route: 048
  5. SOMA [Concomitant]
     Route: 048

REACTIONS (4)
  - CARDIAC DISORDER [None]
  - CEREBROVASCULAR ACCIDENT [None]
  - INFECTION [None]
  - MYOCARDIAL INFARCTION [None]
